FAERS Safety Report 9524342 (Version 1)
Quarter: 2013Q3

REPORT INFORMATION
  Report Type: Report from Study
  Country: US (occurrence: US)
  Receive Date: 20130916
  Receipt Date: 20130916
  Transmission Date: 20140515
  Serious: Yes (Other)
  Sender: FDA-Public Use
  Company Number: US-BAYER-2013-111257

PATIENT
  Age: 72 Year
  Sex: Male
  Weight: 73.92 kg

DRUGS (5)
  1. STIVARGA [Suspect]
     Indication: COLON CANCER
     Dosage: 160 MG, QD (TAKE 160 MG, 4 TABLETS, ON DAYS 1 THROUGH 21 EVERY 28 DAYS
     Route: 048
     Dates: start: 20130829, end: 20130907
  2. GLYBURIDE [Concomitant]
     Dosage: DAILY DOSE 2.5 MG
  3. ATORVASTATIN [Concomitant]
     Dosage: DAILY DOSE 10 MG
  4. FLOMAX [TAMSULOSIN HYDROCHLORIDE] [Concomitant]
     Dosage: DAILY DOSE .4 MG
  5. AMIODARONE [Concomitant]
     Dosage: DAILY DOSE 100 MG

REACTIONS (4)
  - Rash [Recovered/Resolved]
  - Pain in extremity [Recovered/Resolved]
  - Rash macular [Recovered/Resolved]
  - Abasia [Recovered/Resolved]
